FAERS Safety Report 13070850 (Version 1)
Quarter: 2016Q4

REPORT INFORMATION
  Report Type: Spontaneous
  Country: US (occurrence: US)
  Receive Date: 20161229
  Receipt Date: 20161229
  Transmission Date: 20170207
  Serious: No
  Sender: FDA-Public Use
  Company Number: US-ASTRAZENECA-2016SF14240

PATIENT
  Age: 55 Year
  Sex: Female
  Weight: 82 kg

DRUGS (1)
  1. NEXIUM 24HR [Suspect]
     Active Substance: ESOMEPRAZOLE MAGNESIUM
     Indication: DYSPEPSIA
     Route: 048

REACTIONS (5)
  - Dysgeusia [Unknown]
  - Intentional product use issue [Unknown]
  - Poor quality drug administered [Unknown]
  - Product odour abnormal [Unknown]
  - Product taste abnormal [Unknown]
